FAERS Safety Report 13887744 (Version 6)
Quarter: 2018Q3

REPORT INFORMATION
  Report Type: Report from Study
  Country: US (occurrence: US)
  Receive Date: 20170821
  Receipt Date: 20180813
  Transmission Date: 20181010
  Serious: Yes (Other)
  Sender: FDA-Public Use
  Company Number: US-ACTELION-A-NJ2017-158153

PATIENT
  Age: 66 Year
  Sex: Female

DRUGS (2)
  1. OPSUMIT [Suspect]
     Active Substance: MACITENTAN
     Indication: PULMONARY ARTERIAL HYPERTENSION
     Dosage: 10 MG, QD
     Route: 048
     Dates: start: 20160318, end: 20180307
  2. OPSUMIT [Suspect]
     Active Substance: MACITENTAN
     Dosage: 10 MG, QD
     Route: 048
     Dates: start: 201805

REACTIONS (6)
  - Retinal detachment [Recovered/Resolved]
  - Eye operation [Unknown]
  - Visual impairment [Unknown]
  - Procedural pain [Unknown]
  - Blindness [Unknown]
  - Retinal operation [Unknown]

NARRATIVE: CASE EVENT DATE: 201705
